FAERS Safety Report 13048614 (Version 1)
Quarter: 2016Q4

REPORT INFORMATION
  Report Type: Not Available
  Country: None (occurrence: US)
  Receive Date: 20161221
  Receipt Date: 20161221
  Transmission Date: 20170207
  Serious: Yes (Disabling)
  Sender: FDA-Public Use
  Company Number: US-AKORN-45694

PATIENT
  Sex: Male

DRUGS (1)
  1. SODIUM CHLORIDE- SODIUM CHLORIDE OINTMENT [Suspect]
     Active Substance: SODIUM CHLORIDE

REACTIONS (3)
  - Poor quality sleep [Not Recovered/Not Resolved]
  - Eye pain [Not Recovered/Not Resolved]
  - Foreign body sensation in eyes [Not Recovered/Not Resolved]
